FAERS Safety Report 19732838 (Version 1)
Quarter: 2021Q3

REPORT INFORMATION
  Report Type: Spontaneous
  Country: US (occurrence: US)
  Receive Date: 20210823
  Receipt Date: 20210823
  Transmission Date: 20211014
  Serious: Yes (Other)
  Sender: FDA-Public Use
  Company Number: US-SA-2021SA275685

PATIENT
  Age: 53 Year
  Sex: Female

DRUGS (2)
  1. ZANTAC [Suspect]
     Active Substance: RANITIDINE HYDROCHLORIDE
     Dosage: 300 MG
     Dates: end: 202010
  2. ZANTAC [Suspect]
     Active Substance: RANITIDINE HYDROCHLORIDE
     Dosage: 150 MG
     Dates: start: 198501

REACTIONS (4)
  - Gastrointestinal carcinoma [Unknown]
  - Hepatic cancer [Unknown]
  - Gallbladder cancer [Unknown]
  - Lung neoplasm malignant [Unknown]

NARRATIVE: CASE EVENT DATE: 20191001
